FAERS Safety Report 21771891 (Version 2)
Quarter: 2022Q4

REPORT INFORMATION
  Report Type: Report from Study
  Country: US (occurrence: US)
  Receive Date: 20221223
  Receipt Date: 20221226
  Transmission Date: 20230113
  Serious: No
  Sender: FDA-Public Use
  Company Number: US-ABBVIE-4246227

PATIENT
  Age: 85 Year
  Sex: Female

DRUGS (1)
  1. HUMIRA [Suspect]
     Active Substance: ADALIMUMAB
     Indication: Colitis ulcerative
     Dosage: CESSATION DATE FOR THE EVENT INAPPROPRIATE DOSE OF DRUG ADMINISTRATION WAS 2022.?ONSET DATE FOR T...
     Route: 058
     Dates: start: 20221111

REACTIONS (2)
  - Incorrect dose administered [Recovered/Resolved]
  - Product storage error [Unknown]

NARRATIVE: CASE EVENT DATE: 20221216
